FAERS Safety Report 4763405-5 (Version None)
Quarter: 2005Q3

REPORT INFORMATION
  Report Type: 
  Country: None (occurrence: None)
  Receive Date: 20050902
  Receipt Date: 20050819
  Transmission Date: 20060218
  Serious: Yes (Other)
  Sender: FDA-Public Use
  Company Number: 05-000197

PATIENT
  Age: 58 Year
  Sex: Female
  Weight: 61.2 kg

DRUGS (2)
  1. FEMRING [Suspect]
     Indication: HORMONE REPLACEMENT THERAPY
     Dosage: 0.05 MG, QD, VAGINAL
     Route: 067
     Dates: start: 20040617, end: 20050323
  2. MULTIVITAMINS (PANTHENOL, ASCORBIC ACID, ERGOCALCIFEROL, FOLIC ACID, N [Concomitant]

REACTIONS (4)
  - ORAL MUCOSAL DISCOLOURATION [None]
  - SWOLLEN TONGUE [None]
  - TONGUE DISORDER [None]
  - TONGUE NEOPLASM [None]
